FAERS Safety Report 7544113-4 (Version None)
Quarter: 2011Q2

REPORT INFORMATION
  Report Type: 
  Country: None (occurrence: None)
  Receive Date: 20110613
  Receipt Date: 20051230
  Transmission Date: 20111010
  Serious: Yes (Death, Hospitalization, Other)
  Sender: FDA-Public Use
  Company Number: PHHO2005US16438

PATIENT
  Sex: Female
  Weight: 46.258 kg

DRUGS (2)
  1. GEMZAR [Suspect]
     Indication: PANCREATIC CARCINOMA
     Dosage: 1000 MG/M2
     Route: 042
     Dates: start: 20050701, end: 20051111
  2. ZOMETA [Suspect]
     Indication: PANCREATIC CARCINOMA
     Dosage: 4 MG, QMO
     Route: 042
     Dates: start: 20050701, end: 20051028

REACTIONS (8)
  - NEOPLASM MALIGNANT [None]
  - VOMITING [None]
  - PNEUMONIA [None]
  - OROPHARYNGEAL PAIN [None]
  - NAUSEA [None]
  - PYREXIA [None]
  - GASTROINTESTINAL DISORDER [None]
  - WEIGHT DECREASED [None]
